FAERS Safety Report 18136841 (Version 1)
Quarter: 2020Q3

REPORT INFORMATION
  Report Type: Spontaneous
  Country: CA (occurrence: CA)
  Receive Date: 20200811
  Receipt Date: 20200811
  Transmission Date: 20201103
  Serious: Yes (Other)
  Sender: FDA-Public Use
  Company Number: CA-TEVA-2020-CA-1812932

PATIENT
  Age: 50 Year
  Sex: Female

DRUGS (4)
  1. OXYCODONE SR 20 MG [Concomitant]
     Dosage: 40 MILLIGRAM DAILY; ONGOING
  2. BUDESONIDE. [Suspect]
     Active Substance: BUDESONIDE
     Dosage: 12 MILLIGRAM DAILY;
     Route: 048
  3. OXYCODONE IR 5 MG [Concomitant]
     Dosage: ONGOING
  4. PREDNISONE 2.5 MG [Concomitant]
     Active Substance: PREDNISONE
     Dosage: 2.5 MILLIGRAM DAILY; ONGOING
     Route: 048

REACTIONS (5)
  - Drug resistance [Unknown]
  - Therapy non-responder [Unknown]
  - Abdominal pain [Unknown]
  - Diarrhoea [Unknown]
  - Rectal haemorrhage [Not Recovered/Not Resolved]
